FAERS Safety Report 4504831-9 (Version None)
Quarter: 2004Q4

REPORT INFORMATION
  Report Type: 
  Country: None (occurrence: None)
  Receive Date: 20041118
  Receipt Date: 20041110
  Transmission Date: 20050328
  Serious: Yes (Disabling, Other)
  Sender: FDA-Public Use
  Company Number: US-MERCK-0411USA02399

PATIENT
  Age: 51 Year
  Sex: Male
  Weight: 89 kg

DRUGS (1)
  1. VIOXX [Suspect]
     Indication: BACK DISORDER
     Route: 048

REACTIONS (4)
  - CORONARY ARTERY OCCLUSION [None]
  - EMOTIONAL DISTRESS [None]
  - HEARING DISABILITY [None]
  - MYOCARDIAL INFARCTION [None]
